FAERS Safety Report 4415144-8 (Version None)
Quarter: 2004Q3

REPORT INFORMATION
  Report Type: 
  Country: None (occurrence: None)
  Receive Date: 20040730
  Receipt Date: 20040726
  Transmission Date: 20050211
  Serious: Yes (Hospitalization)
  Sender: FDA-Public Use
  Company Number: J081-002-001696

PATIENT
  Age: 82 Year
  Sex: Male

DRUGS (7)
  1. ARICEPT [Suspect]
     Indication: DEMENTIA ALZHEIMER'S TYPE
     Dosage: 5 MG, 1 IN 1 D, ORAL
     Route: 048
     Dates: start: 20031001, end: 20040326
  2. CETAPRIL(ALACEPRIL) [Concomitant]
  3. TICLOPIDINE HCL [Concomitant]
  4. PERSELIN(ALLYLESTRENOL) [Concomitant]
  5. ASPIRIN [Concomitant]
  6. PERSANTIN [Concomitant]
  7. FK(FK) [Concomitant]

REACTIONS (3)
  - CHOLANGITIS [None]
  - CHOLECYSTITIS ACUTE [None]
  - PANCREATITIS ACUTE [None]
